FAERS Safety Report 7784208-3 (Version None)
Quarter: 2011Q3

REPORT INFORMATION
  Report Type: 
  Country: None (occurrence: None)
  Receive Date: 20110928
  Receipt Date: 20110919
  Transmission Date: 20111222
  Serious: Yes (Hospitalization, Other)
  Sender: FDA-Public Use
  Company Number: US-US-EMD SERONO, INC.-7081057

PATIENT
  Sex: Female

DRUGS (20)
  1. AMANTADINE HCL [Concomitant]
  2. DEXILANT [Concomitant]
  3. REBIF [Suspect]
     Route: 058
  4. POTASSIUM CHLORIDE [Concomitant]
  5. PROMETHAZINE [Concomitant]
  6. ZIPSOR [Concomitant]
     Route: 048
  7. LEVOTHYROXINE [Concomitant]
  8. REBIF [Suspect]
     Indication: MULTIPLE SCLEROSIS
     Route: 058
     Dates: start: 20100928
  9. BACLOFEN [Concomitant]
  10. ONDANSETRON [Concomitant]
  11. TRAMADOL [Concomitant]
  12. MECLIZINE [Concomitant]
     Indication: DIZZINESS
  13. PRISTIQ [Concomitant]
  14. TOPIRAMATE [Concomitant]
  15. ESTRADIOL [Concomitant]
     Route: 048
  16. NABUMETONE [Concomitant]
  17. NUVIGIL [Concomitant]
  18. AMILORIDE HYDROCHLORIDE [Concomitant]
  19. DOXYCYCLINE [Concomitant]
  20. GABAPENTIN [Concomitant]

REACTIONS (9)
  - VIRAL UPPER RESPIRATORY TRACT INFECTION [None]
  - DEHYDRATION [None]
  - TACHYCARDIA [None]
  - DEEP VEIN THROMBOSIS [None]
  - PHLEBITIS [None]
  - DECREASED IMMUNE RESPONSIVENESS [None]
  - STAPHYLOCOCCAL INFECTION [None]
  - CHEST PAIN [None]
  - VIRAL INFECTION [None]
